FAERS Safety Report 5512689-4 (Version None)
Quarter: 2007Q4

REPORT INFORMATION
  Report Type: 
  Country: None (occurrence: None)
  Receive Date: 20071108
  Receipt Date: 20071101
  Transmission Date: 20080405
  Serious: Yes (Hospitalization)
  Sender: FDA-Public Use
  Company Number: 2007SP022155

PATIENT
  Age: 75 Year
  Sex: Male
  Weight: 69.6 kg

DRUGS (3)
  1. TEMOZOLOMIDE [Suspect]
     Indication: GLIOBLASTOMA MULTIFORME
     Dosage: 75 MG/J2;QD;PO
     Route: 048
     Dates: start: 20071016, end: 20071025
  2. KEPPRA [Suspect]
  3. RISPERDAL [Suspect]

REACTIONS (5)
  - BRAIN OEDEMA [None]
  - CONFUSIONAL STATE [None]
  - DEPRESSED LEVEL OF CONSCIOUSNESS [None]
  - INFECTION [None]
  - INTESTINAL OBSTRUCTION [None]
